FAERS Safety Report 26124352 (Version 1)
Quarter: 2025Q4

REPORT INFORMATION
  Report Type: Report from Study
  Country: US (occurrence: US)
  Receive Date: 20251205
  Receipt Date: 20251205
  Transmission Date: 20260118
  Serious: Yes (Death, Other)
  Sender: DAIICHI
  Company Number: US-DSJP-DS-2025-170315-US

PATIENT
  Age: 65 Year
  Sex: Female

DRUGS (1)
  1. ENHERTU [Suspect]
     Active Substance: FAM-TRASTUZUMAB DERUXTECAN-NXKI
     Indication: Breast cancer female
     Dosage: 485 MG
     Route: 042
     Dates: start: 20250403, end: 20251115

REACTIONS (1)
  - Death [Fatal]

NARRATIVE: CASE EVENT DATE: 20251115
